FAERS Safety Report 9407686 (Version 2)
Quarter: 2013Q3

REPORT INFORMATION
  Report Type: Spontaneous
  Country: US (occurrence: US)
  Receive Date: 20130718
  Receipt Date: 20130724
  Transmission Date: 20140515
  Serious: Yes (Other)
  Sender: FDA-Public Use
  Company Number: US-PFIZER INC-2013198599

PATIENT
  Age: 47 Year
  Sex: Female
  Weight: 98.87 kg

DRUGS (6)
  1. LYRICA [Suspect]
     Indication: FIBROMYALGIA
     Dosage: 150 MG, 2X/DAY
     Route: 048
     Dates: start: 2011
  2. LYRICA [Suspect]
     Indication: NEUROPATHY PERIPHERAL
     Dosage: 150 MG, 1X/DAY (DAILY)
     Route: 048
     Dates: start: 2011
  3. LYRICA [Suspect]
     Indication: MYALGIA
     Dosage: 75 MG, 2X/DAY
     Route: 048
     Dates: start: 2013
  4. LYRICA [Suspect]
     Indication: AMNESIA
  5. ZOVIRAX [Suspect]
     Indication: HERPES ZOSTER
     Dosage: 400 MG, 5X/DAY
  6. IBUPROFEN [Concomitant]
     Dosage: UNK, AS NEEDED

REACTIONS (9)
  - Off label use [Unknown]
  - Intentional drug misuse [Unknown]
  - Impaired driving ability [Unknown]
  - Activities of daily living impaired [Unknown]
  - Amnesia [Unknown]
  - Drug intolerance [Unknown]
  - Pain [Not Recovered/Not Resolved]
  - Somnolence [Not Recovered/Not Resolved]
  - Pain [Unknown]
